FAERS Safety Report 22989676 (Version 2)
Quarter: 2023Q4

REPORT INFORMATION
  Report Type: Report from Study
  Country: MX (occurrence: MX)
  Receive Date: 20230927
  Receipt Date: 20231026
  Transmission Date: 20240110
  Serious: Yes (Death)
  Sender: FDA-Public Use
  Company Number: MX-002147023-NVSC2023MX208175

PATIENT
  Age: 66 Year
  Sex: Male
  Weight: 67 kg

DRUGS (1)
  1. ELTROMBOPAG OLAMINE [Suspect]
     Active Substance: ELTROMBOPAG OLAMINE
     Indication: Aplastic anaemia
     Dosage: 1 DOSAGE FORM (25 MG), QD
     Route: 048
     Dates: start: 202306, end: 20230816

REACTIONS (6)
  - Decreased appetite [Fatal]
  - Drug ineffective [Fatal]
  - Depressed mood [Unknown]
  - Dizziness [Unknown]
  - Haemoglobin decreased [Unknown]
  - Pain [Unknown]

NARRATIVE: CASE EVENT DATE: 20230601
